FAERS Safety Report 5530592-0 (Version None)
Quarter: 2007Q4

REPORT INFORMATION
  Report Type: 
  Country: None (occurrence: None)
  Receive Date: 20071130
  Receipt Date: 20071116
  Transmission Date: 20080405
  Serious: Yes (Other)
  Sender: FDA-Public Use
  Company Number: AU-GENENTECH-251520

PATIENT
  Age: 92 Year
  Sex: Female

DRUGS (1)
  1. LUCENTIS [Suspect]
     Indication: DRUG USE FOR UNKNOWN INDICATION
     Dosage: UNK, 1/MONTH
     Route: 031
     Dates: start: 20070601

REACTIONS (3)
  - DRUG INEFFECTIVE [None]
  - PHOTOPSIA [None]
  - PSYCHOTIC DISORDER [None]
